FAERS Safety Report 5731763-0 (Version None)
Quarter: 2008Q2

REPORT INFORMATION
  Report Type: 
  Country: None (occurrence: None)
  Receive Date: 20080506
  Receipt Date: 20080506
  Transmission Date: 20081010
  Serious: No
  Sender: FDA-Public Use
  Company Number: None

PATIENT
  Age: 71 Year
  Sex: Male
  Weight: 109.7705 kg

DRUGS (2)
  1. DIGITEK [Suspect]
     Indication: ATRIAL FIBRILLATION
     Dosage: .25 DAILY PO
     Route: 048
  2. DIGITEK [Suspect]
     Indication: CARDIOMYOPATHY
     Dosage: .25 DAILY PO
     Route: 048

REACTIONS (4)
  - FATIGUE [None]
  - MALAISE [None]
  - NAUSEA [None]
  - VISUAL DISTURBANCE [None]
